FAERS Safety Report 17971674 (Version 6)
Quarter: 2020Q4

REPORT INFORMATION
  Report Type: Report from Study
  Country: None (occurrence: DE)
  Receive Date: 20200702
  Receipt Date: 20201106
  Transmission Date: 20210113
  Serious: Yes (Hospitalization, Other)
  Sender: FDA-Public Use
  Company Number: DE-ABBVIE-20K-062-3467322-00

PATIENT
  Age: 70 Year
  Sex: Male

DRUGS (22)
  1. TAMSULOSIN [Concomitant]
     Active Substance: TAMSULOSIN
     Indication: PRODUCT USED FOR UNKNOWN INDICATION
  2. DUODOPA [Suspect]
     Active Substance: CARBIDOPA\LEVODOPA
     Indication: PARKINSON^S DISEASE
     Dosage: MD 9 ML CRD 3 ML/H ED 1.2 ML
     Route: 050
     Dates: start: 201903, end: 2020
  3. DUODOPA [Suspect]
     Active Substance: CARBIDOPA\LEVODOPA
     Dosage: MD 8 ML CRD 2.9 ML/H ED 1.2 ML
     Route: 050
     Dates: start: 2020
  4. MADOPAR [Concomitant]
     Active Substance: BENSERAZIDE HYDROCHLORIDE\LEVODOPA
     Indication: PRODUCT USED FOR UNKNOWN INDICATION
     Dosage: 100/25 MG?2 TABLETS AT 22:00
  5. PREGABALIN. [Concomitant]
     Active Substance: PREGABALIN
     Indication: PRODUCT USED FOR UNKNOWN INDICATION
  6. OPICAPONE [Concomitant]
     Active Substance: OPICAPONE
     Indication: PRODUCT USED FOR UNKNOWN INDICATION
  7. VITAMIN B12 [Concomitant]
     Active Substance: CYANOCOBALAMIN
     Indication: PRODUCT USED FOR UNKNOWN INDICATION
     Route: 058
  8. DUODOPA [Suspect]
     Active Substance: CARBIDOPA\LEVODOPA
     Dosage: MD 8 ML CRD 2.7 ML/H ED 1.2 ML
     Route: 050
     Dates: start: 20201030, end: 2020
  9. AMINEURIN [Concomitant]
     Active Substance: AMITRIPTYLINE HYDROCHLORIDE
     Indication: PRODUCT USED FOR UNKNOWN INDICATION
  10. DUODOPA [Suspect]
     Active Substance: CARBIDOPA\LEVODOPA
     Dosage: MD 8 ML CRD 3 ML/H ED 1.2 ML
     Route: 050
     Dates: start: 2020, end: 2020
  11. DUODOPA [Suspect]
     Active Substance: CARBIDOPA\LEVODOPA
     Dosage: MD 8 ML CRD 3.3 ML/H ED 1.2 ML?6.00 - 22.00 3.3 ML/H, AT NIGH: PAUSE
     Route: 050
     Dates: start: 2020, end: 2020
  12. DUODOPA [Suspect]
     Active Substance: CARBIDOPA\LEVODOPA
     Dosage: MD 8 ML CRD 3.2 ML/H ED 1.2 ML
     Route: 050
     Dates: start: 2020, end: 2020
  13. DUODOPA [Suspect]
     Active Substance: CARBIDOPA\LEVODOPA
     Dosage: MD 8 ML CRD 3 ML/H ED 1.2 ML
     Route: 050
     Dates: start: 2020
  14. ASPIRIN. [Concomitant]
     Active Substance: ASPIRIN
     Indication: PRODUCT USED FOR UNKNOWN INDICATION
  15. LOSARTAN. [Concomitant]
     Active Substance: LOSARTAN
     Indication: PRODUCT USED FOR UNKNOWN INDICATION
  16. ONGENTYS [Concomitant]
     Active Substance: OPICAPONE
     Indication: PRODUCT USED FOR UNKNOWN INDICATION
  17. FINASTERID [Concomitant]
     Active Substance: FINASTERIDE
     Indication: PRODUCT USED FOR UNKNOWN INDICATION
  18. PROPRANOLOL [Concomitant]
     Active Substance: PROPRANOLOL HYDROCHLORIDE
     Indication: PRODUCT USED FOR UNKNOWN INDICATION
  19. OBSIDAN [Concomitant]
     Indication: PRODUCT USED FOR UNKNOWN INDICATION
  20. DUODOPA [Suspect]
     Active Substance: CARBIDOPA\LEVODOPA
     Dosage: MD 8 ML CRD 2.9 ML/H ED 1.2 ML
     Route: 050
     Dates: start: 2020, end: 20201030
  21. AMITRIPTYLIN [Suspect]
     Active Substance: AMITRIPTYLINE
     Indication: PARKINSON^S DISEASE
     Route: 065
     Dates: end: 2020
  22. AMLODIPINE [Concomitant]
     Active Substance: AMLODIPINE BESYLATE
     Indication: PRODUCT USED FOR UNKNOWN INDICATION

REACTIONS (27)
  - Tularaemia [Recovered/Resolved]
  - Food craving [Unknown]
  - Basophil count increased [Unknown]
  - Hypercoagulation [Unknown]
  - C-reactive protein decreased [Unknown]
  - Blood potassium increased [Unknown]
  - Adverse drug reaction [Unknown]
  - Portal vein thrombosis [Unknown]
  - Hepatic cirrhosis [Unknown]
  - Weight decreased [Not Recovered/Not Resolved]
  - Red blood cell count decreased [Unknown]
  - Mobility decreased [Not Recovered/Not Resolved]
  - Decreased appetite [Unknown]
  - Myalgia [Unknown]
  - Wrong technique in device usage process [Not Recovered/Not Resolved]
  - Dystonia [Unknown]
  - Portal vein cavernous transformation [Unknown]
  - Granulocyte count increased [Unknown]
  - Haemoglobin decreased [Unknown]
  - Parkinson^s disease [Unknown]
  - Hypokinesia [Unknown]
  - Night sweats [Unknown]
  - Hypermobility syndrome [Recovered/Resolved]
  - Neoplasm [Unknown]
  - Blood glucose increased [Unknown]
  - On and off phenomenon [Unknown]
  - Dyskinesia [Unknown]

NARRATIVE: CASE EVENT DATE: 2020
